FAERS Safety Report 9704496 (Version 1)
Quarter: 2013Q4

REPORT INFORMATION
  Report Type: Report from Study
  Country: US (occurrence: US)
  Receive Date: 20131122
  Receipt Date: 20131122
  Transmission Date: 20140711
  Serious: Yes (Other)
  Sender: FDA-Public Use
  Company Number: US-ROCHE-1302596

PATIENT
  Age: 65 Year
  Sex: Female
  Weight: 83.17 kg

DRUGS (18)
  1. BEVACIZUMAB [Suspect]
     Indication: NON-SMALL CELL LUNG CANCER
     Route: 065
  2. GEMCITABINE [Suspect]
     Indication: NON-SMALL CELL LUNG CANCER
     Dosage: D1, D8, D151
     Route: 065
     Dates: start: 20130815, end: 20131021
  3. PACLITAXEL [Concomitant]
  4. DOCUSATE SODIUM\SENNOSIDES [Concomitant]
     Indication: CONSTIPATION
     Dosage: AS NEEDED , NIGHTLY(BEDTIME
     Route: 048
  5. PRILOSEC [Concomitant]
     Route: 048
  6. ACETAMINOPHEN [Concomitant]
     Indication: PAIN
     Dosage: PRN
     Route: 048
  7. IBUPROFEN [Concomitant]
     Indication: PAIN
     Route: 048
  8. DIPHENHYDRAMINE [Concomitant]
     Dosage: NIGHTLY
     Route: 048
  9. MELATONIN [Concomitant]
     Route: 065
     Dates: start: 20130821
  10. ONDANSETRON [Concomitant]
     Indication: NAUSEA
     Route: 048
  11. ONDANSETRON [Concomitant]
     Indication: VOMITING
  12. LACTOBACILLUS ACIDOPHILUS [Concomitant]
     Dosage: EVERY OTHER DAY
     Route: 048
  13. ASPIRIN [Concomitant]
     Route: 048
  14. OMEGA 3 [Concomitant]
     Dosage: 1 TAB IN A.M
     Route: 048
  15. VITAMIN E [Concomitant]
     Route: 048
  16. ERGOCALCIFEROL [Concomitant]
     Route: 048
  17. ATORVASTATIN [Concomitant]
     Dosage: NIGHTLY
     Route: 048
  18. LEVOTHYROXINE [Concomitant]
     Route: 048

REACTIONS (3)
  - Dyspnoea [Unknown]
  - Oedema [Unknown]
  - Pulmonary toxicity [Unknown]
